FAERS Safety Report 21866533 (Version 2)
Quarter: 2024Q1

REPORT INFORMATION
  Report Type: Spontaneous
  Country: US (occurrence: US)
  Receive Date: 20230116
  Receipt Date: 20240208
  Transmission Date: 20240410
  Serious: No
  Sender: FDA-Public Use
  Company Number: US-INTRA-CELLULAR THERAPIES, INC.-2022ICT01736

PATIENT
  Age: 44 Year
  Sex: Female
  Weight: 113.38 kg

DRUGS (11)
  1. CAPLYTA [Suspect]
     Active Substance: LUMATEPERONE
     Indication: Bipolar disorder
     Dosage: 42 MG, 1X/DAY AT BEDTIME
     Route: 048
     Dates: start: 2022, end: 2022
  2. CAPLYTA [Suspect]
     Active Substance: LUMATEPERONE
     Indication: Psychotic disorder
     Dosage: 42 MG, 1X/DAY AT BEDTIME
     Route: 048
     Dates: start: 2022, end: 2022
  3. CAPLYTA [Suspect]
     Active Substance: LUMATEPERONE
     Indication: Bipolar disorder
     Dosage: FIRST DOSE DECREASE
     Route: 048
  4. CAPLYTA [Suspect]
     Active Substance: LUMATEPERONE
     Indication: Psychotic disorder
  5. CAPLYTA [Suspect]
     Active Substance: LUMATEPERONE
     Indication: Bipolar disorder
     Dosage: 10.5 MG
     Route: 048
     Dates: end: 20230117
  6. CAPLYTA [Suspect]
     Active Substance: LUMATEPERONE
     Indication: Psychotic disorder
  7. SEROQUEL [Concomitant]
     Active Substance: QUETIAPINE FUMARATE
  8. GABAPENTIN [Concomitant]
     Active Substance: GABAPENTIN
  9. FLOMAX [Concomitant]
     Active Substance: TAMSULOSIN HYDROCHLORIDE
  10. BUPRENORPHINE [Concomitant]
     Active Substance: BUPRENORPHINE
  11. DEPAKOTE [Concomitant]
     Active Substance: DIVALPROEX SODIUM

REACTIONS (5)
  - Malaise [Recovered/Resolved]
  - Swelling face [Recovered/Resolved]
  - Face oedema [Recovered/Resolved]
  - Pain [Recovered/Resolved]
  - Sedation [Recovered/Resolved]

NARRATIVE: CASE EVENT DATE: 20220101
